FAERS Safety Report 15248429 (Version 2)
Quarter: 2018Q3

REPORT INFORMATION
  Report Type: Spontaneous
  Country: US (occurrence: US)
  Receive Date: 20180807
  Receipt Date: 20180911
  Transmission Date: 20181010
  Serious: No
  Sender: FDA-Public Use
  Company Number: US-SA-2018SA213425

PATIENT
  Age: 58 Year
  Sex: Female

DRUGS (3)
  1. DUPIXENT [Suspect]
     Active Substance: DUPILUMAB
     Indication: DERMATITIS ATOPIC
     Dosage: UNK UNK, QOW
     Route: 058
     Dates: start: 20170915
  2. DUPIXENT [Suspect]
     Active Substance: DUPILUMAB
     Dosage: UNK
     Route: 058
     Dates: start: 20180409
  3. DUPIXENT [Suspect]
     Active Substance: DUPILUMAB
     Indication: PRURITUS GENERALISED
     Dosage: UNK UNK, QOW
     Route: 058

REACTIONS (8)
  - Peripheral swelling [Unknown]
  - Dry skin [Unknown]
  - Skin disorder [Unknown]
  - Pruritus generalised [Unknown]
  - Drug dose omission [Unknown]
  - Swelling face [Unknown]
  - Burning sensation [Unknown]
  - Malaise [Unknown]

NARRATIVE: CASE EVENT DATE: 20180905
